FAERS Safety Report 9607782 (Version 2)
Quarter: 2013Q4

REPORT INFORMATION
  Report Type: Report from Study
  Country: GR (occurrence: GR)
  Receive Date: 20131009
  Receipt Date: 20131009
  Transmission Date: 20140711
  Serious: Yes (Death, Hospitalization, Disabling)
  Sender: FDA-Public Use
  Company Number: GR-UCBSA-093437

PATIENT
  Age: 76 Year
  Sex: Male
  Weight: 98 kg

DRUGS (5)
  1. NEUPRO [Suspect]
     Indication: PARKINSON^S DISEASE
     Route: 062
     Dates: start: 20110721, end: 20130622
  2. NEUPRO [Suspect]
     Indication: PARKINSON^S DISEASE
     Route: 062
     Dates: start: 20110706, end: 20110720
  3. INSOULINE [Concomitant]
     Indication: DIABETES MELLITUS
     Dosage: VARIABLE IU, FREQUENCY DEPENDS ON GLUKOSE LEVEL
     Dates: end: 20130820
  4. LASIX [Concomitant]
     Dates: end: 20130820
  5. SINTROM [Concomitant]
     Indication: ARRHYTHMIA
     Dosage: 4 X 3/4 MG
     Dates: start: 200907, end: 20130820

REACTIONS (4)
  - Pulmonary oedema [Fatal]
  - Respiratory failure [Fatal]
  - Renal failure [Fatal]
  - Cardiac failure [Fatal]
